FAERS Safety Report 9786021 (Version 1)
Quarter: 2013Q4

REPORT INFORMATION
  Report Type: Spontaneous
  Country: FR (occurrence: None)
  Receive Date: 20131223
  Receipt Date: 20131223
  Transmission Date: 20140711
  Serious: Yes (Other)
  Sender: FDA-Public Use
  Company Number: 2013P1021987

PATIENT
  Sex: 0

DRUGS (8)
  1. VANCOMYCIN [Suspect]
  2. FLUINDIONE [Concomitant]
  3. ACEBUTOLOL [Concomitant]
  4. AMIODARONE [Concomitant]
  5. ASPIRIN [Concomitant]
  6. CIPROFLOXACIN [Concomitant]
  7. LINCOMYCIN [Concomitant]
  8. RIFAMPICIN [Concomitant]

REACTIONS (1)
  - Linear IgA disease [None]
